FAERS Safety Report 20123496 (Version 2)
Quarter: 2022Q1

REPORT INFORMATION
  Report Type: Spontaneous
  Country: JP (occurrence: JP)
  Receive Date: 20211129
  Receipt Date: 20220307
  Transmission Date: 20220423
  Serious: Yes (Life-Threatening)
  Sender: FDA-Public Use
  Company Number: JP-CHUGAI-2021026177

PATIENT
  Age: 63 Year
  Sex: Female
  Weight: 57 kg

DRUGS (1)
  1. KADCYLA [Suspect]
     Active Substance: ADO-TRASTUZUMAB EMTANSINE
     Indication: Breast cancer
     Route: 041
     Dates: start: 20180813, end: 20200803

REACTIONS (3)
  - Nodular regenerative hyperplasia [Recovering/Resolving]
  - Portal hypertension [Recovering/Resolving]
  - Gastric varices [Recovering/Resolving]

NARRATIVE: CASE EVENT DATE: 20200808
